FAERS Safety Report 14415530 (Version 1)
Quarter: 2018Q1

REPORT INFORMATION
  Report Type: Not Available
  Country: US (occurrence: US)
  Receive Date: 20180121
  Receipt Date: 20180121
  Transmission Date: 20180509
  Serious: No
  Sender: FDA-Public Use
  Company Number: US-NEUROCRINE BIOSCIENCES INC.-2017NBI02062

PATIENT
  Age: 66 Year
  Sex: Male

DRUGS (2)
  1. INGREZZA [Suspect]
     Active Substance: VALBENAZINE
     Indication: PRODUCT USED FOR UNKNOWN INDICATION
     Route: 048
     Dates: start: 20170530, end: 20170606
  2. INGREZZA [Suspect]
     Active Substance: VALBENAZINE
     Route: 048
     Dates: start: 20170607, end: 20170611

REACTIONS (5)
  - Akathisia [Unknown]
  - Dyspnoea [Unknown]
  - Angina pectoris [Unknown]
  - Fatigue [Unknown]
  - Formication [Unknown]

NARRATIVE: CASE EVENT DATE: 201706
